FAERS Safety Report 8796180 (Version 1)
Quarter: 2012Q4

REPORT INFORMATION
  Report Type: 
  Country: DE (occurrence: US)
  Receive Date: 20120919
  Receipt Date: 20120919
  Transmission Date: 20130627
  Serious: Yes (Other)
  Sender: FDA-Public Use
  Company Number: US-BRISTOL-MYERS SQUIBB COMPANY-16955866

PATIENT
  Age: 61 Year
  Sex: Male

DRUGS (18)
  1. METFORMIN HCL [Suspect]
     Indication: TYPE 2 DIABETES MELLITUS
  2. LISINOPRIL [Suspect]
     Indication: HYPERTENSION
  3. HYDROCHLOROTHIAZIDE [Suspect]
     Indication: HYPERTENSION
  4. TUMS [Suspect]
     Dosage: 1df=3 to 4tabs
1000mg (equivalent to 400 mg of elemental calcium per tablet)
  5. DESIPRAMINE [Concomitant]
     Indication: DEPRESSION
  6. DILTIAZEM HCL [Concomitant]
     Indication: DEPRESSION
  7. LOVASTATIN [Concomitant]
     Indication: HYPERLIPIDAEMIA
  8. GLIPIZIDE [Concomitant]
     Indication: TYPE 2 DIABETES MELLITUS
  9. DEPAKOTE [Concomitant]
     Indication: DEPRESSION
  10. DEPAKOTE [Concomitant]
     Indication: CLUSTER HEADACHE
  11. JANUVIA [Concomitant]
     Indication: TYPE 2 DIABETES MELLITUS
  12. MIRAPEX [Concomitant]
     Indication: RESTLESS LEGS SYNDROME
  13. ZOLPIDEM [Concomitant]
     Indication: DEPRESSION
  14. ZOLPIDEM [Concomitant]
     Indication: CLUSTER HEADACHE
  15. WELLBUTRIN [Concomitant]
     Indication: DEPRESSION
  16. UROXATRAL [Concomitant]
     Indication: BENIGN PROSTATIC HYPERPLASIA
  17. UROXATRAL [Concomitant]
     Indication: NEPHROLITHIASIS
  18. VITAMIN D3 [Concomitant]

REACTIONS (2)
  - Milk-alkali syndrome [Unknown]
  - Electrocardiogram abnormal [Unknown]
